FAERS Safety Report 9192367 (Version 2)
Quarter: 2013Q2

REPORT INFORMATION
  Report Type: Report from Study
  Country: TH (occurrence: TH)
  Receive Date: 20130327
  Receipt Date: 20130612
  Transmission Date: 20140414
  Serious: Yes (Hospitalization)
  Sender: FDA-Public Use
  Company Number: TH-JNJFOC-20130310067

PATIENT
  Age: 22 Year
  Sex: Male
  Weight: 80 kg

DRUGS (13)
  1. INVEGA SUSTENNA [Suspect]
     Indication: SCHIZOPHRENIA
     Route: 030
     Dates: start: 20110804
  2. INVEGA SUSTENNA [Suspect]
     Indication: SCHIZOPHRENIA
     Route: 030
     Dates: start: 20110704
  3. DIAZEPAM [Concomitant]
     Indication: AGITATION
     Route: 065
     Dates: start: 20110808, end: 20110809
  4. DIAZEPAM [Concomitant]
     Indication: AGITATION
     Route: 065
     Dates: start: 20090313, end: 20110808
  5. DIAZEPAM [Concomitant]
     Indication: AGITATION
     Route: 065
     Dates: start: 20110809, end: 20110829
  6. DIAZEPAM [Concomitant]
     Indication: INSOMNIA
     Route: 065
     Dates: start: 20090313, end: 20110808
  7. DIAZEPAM [Concomitant]
     Indication: INSOMNIA
     Route: 065
     Dates: start: 20110809, end: 20110829
  8. DIAZEPAM [Concomitant]
     Indication: INSOMNIA
     Route: 065
     Dates: start: 20110808, end: 20110809
  9. THIORIDAZINE [Concomitant]
     Indication: PSYCHOTIC DISORDER
     Route: 065
     Dates: start: 20110509, end: 20110808
  10. TRAZODONE [Concomitant]
     Indication: INSOMNIA
     Route: 065
     Dates: start: 20110804, end: 20110831
  11. CLONAZEPAM [Concomitant]
     Indication: AGITATION
     Route: 065
     Dates: start: 20110809, end: 20110829
  12. PERPHENAZINE [Concomitant]
     Indication: PSYCHOTIC DISORDER
     Route: 065
     Dates: start: 20070716, end: 20110703
  13. PERPHENAZINE [Concomitant]
     Indication: PSYCHOTIC DISORDER
     Route: 065
     Dates: start: 20111226, end: 20120123

REACTIONS (1)
  - Schizophrenia [Recovered/Resolved]
